FAERS Safety Report 8835602 (Version 1)
Quarter: 2012Q4

REPORT INFORMATION
  Report Type: 
  Country: BR (occurrence: BR)
  Receive Date: 20121011
  Receipt Date: 20121011
  Transmission Date: 20130627
  Serious: Yes (Death, Hospitalization)
  Sender: FDA-Public Use
  Company Number: BR-BAYER-2012-102786

PATIENT
  Age: 72 Year
  Sex: Male

DRUGS (2)
  1. NEXAVAR [Suspect]
     Indication: ANGIOSARCOMA METASTATIC
     Dosage: 400 mg, BID
     Route: 048
     Dates: start: 20120813, end: 20120817
  2. NEXAVAR [Suspect]
     Indication: METASTASES TO LIVER
     Dosage: 400 mg, QD
     Route: 048
     Dates: start: 20120818, end: 20120820

REACTIONS (3)
  - Loss of consciousness [Fatal]
  - Aphasia [Fatal]
  - Angiosarcoma [Fatal]
